FAERS Safety Report 8843347 (Version 6)
Quarter: 2013Q1

REPORT INFORMATION
  Report Type: Spontaneous
  Country: IE (occurrence: IE)
  Receive Date: 20121016
  Receipt Date: 20130321
  Transmission Date: 20140127
  Serious: Yes (Death, Hospitalization)
  Sender: FDA-Public Use
  Company Number: IE-CELGENEUS-167-21880-11032486

PATIENT
  Age: 81 Year
  Sex: Male

DRUGS (3)
  1. THALIDOMIDE [Suspect]
     Indication: PLASMA CELL MYELOMA
     Dosage: 100 MILLIGRAM
     Route: 048
     Dates: start: 201003, end: 201011
  2. WARFARIN [Concomitant]
     Indication: ATRIAL FIBRILLATION
     Route: 065
  3. PAMIDRONATE [Concomitant]
     Indication: PLASMA CELL MYELOMA
     Route: 065

REACTIONS (1)
  - Metastatic neoplasm [Fatal]
